FAERS Safety Report 4822306-4 (Version None)
Quarter: 2005Q4

REPORT INFORMATION
  Report Type: 
  Country: None (occurrence: None)
  Receive Date: 20051103
  Receipt Date: 20051018
  Transmission Date: 20060501
  Serious: Yes (Hospitalization, Other)
  Sender: FDA-Public Use
  Company Number: USA0508104428

PATIENT
  Age: 70 Year
  Sex: Female
  Weight: 66 kg

DRUGS (8)
  1. EVISTA [Suspect]
     Indication: OSTEOPOROSIS PROPHYLAXIS
     Dosage: 60 MG/1 DAY
     Dates: start: 19991019, end: 20050713
  2. LIPITOR [Concomitant]
  3. COZAAR [Concomitant]
  4. BEXTRA [Concomitant]
  5. PREVACID [Concomitant]
  6. DYAZIDE [Concomitant]
  7. ASA (ACETYSALICYLIC ACID) [Concomitant]
  8. PLAVIX [Concomitant]

REACTIONS (1)
  - COLON CANCER [None]
